FAERS Safety Report 7394893-6 (Version None)
Quarter: 2011Q2

REPORT INFORMATION
  Report Type: 
  Country: None (occurrence: None)
  Receive Date: 20110405
  Receipt Date: 20110325
  Transmission Date: 20111010
  Serious: Yes (Hospitalization, Other)
  Sender: FDA-Public Use
  Company Number: B0703931A

PATIENT
  Sex: Male

DRUGS (5)
  1. RITONAVIR [Concomitant]
     Indication: HIV INFECTION
     Route: 048
     Dates: start: 20091001
  2. MARAVIROC [Suspect]
     Indication: HIV INFECTION
     Dosage: 800MG TWICE PER DAY
     Dates: start: 20091001
  3. RALTEGRAVIR [Concomitant]
     Indication: HIV INFECTION
     Route: 048
     Dates: start: 20091001
  4. DARUNAVIR [Concomitant]
     Indication: HIV INFECTION
     Route: 048
     Dates: start: 20091001
  5. ETRAVIRINE [Concomitant]
     Dosage: 300MG TWICE PER DAY
     Dates: start: 20091001

REACTIONS (1)
  - ANAL CANCER [None]
